FAERS Safety Report 8974091 (Version 1)
Quarter: 2012Q4

REPORT INFORMATION
  Report Type: Spontaneous
  Country: US (occurrence: None)
  Receive Date: 20121217
  Receipt Date: 20121217
  Transmission Date: 20130627
  Serious: Yes (Disabling)
  Sender: FDA-Public Use
  Company Number: None

PATIENT
  Age: 45 Year
  Sex: Female
  Weight: 86.18 kg

DRUGS (2)
  1. GABAPENTIN [Suspect]
     Indication: NEUROPATHIC PAIN
     Dates: start: 20091001, end: 20100205
  2. GABAPENTIN [Suspect]
     Indication: NEUROPATHIC PAIN
     Route: 048
     Dates: start: 20110717, end: 20110721

REACTIONS (7)
  - Tremor [None]
  - Local swelling [None]
  - Laceration [None]
  - Central nervous system lesion [None]
  - Demyelination [None]
  - Product substitution issue [None]
  - Product quality issue [None]
